FAERS Safety Report 6367916-0 (Version None)
Quarter: 2009Q3

REPORT INFORMATION
  Report Type: 
  Country: None (occurrence: None)
  Receive Date: 20090922
  Receipt Date: 20090115
  Transmission Date: 20100115
  Serious: No
  Sender: FDA-Public Use
  Company Number: A0519510A

PATIENT
  Sex: Male

DRUGS (2)
  1. SEREVENT [Suspect]
     Indication: EMPHYSEMA
     Route: 055
  2. ADVAIR HFA [Suspect]
     Indication: EMPHYSEMA
     Route: 055

REACTIONS (1)
  - DRUG INEFFECTIVE [None]
